FAERS Safety Report 7818515-2 (Version None)
Quarter: 2011Q4

REPORT INFORMATION
  Report Type: 
  Country: None (occurrence: None)
  Receive Date: 20111017
  Receipt Date: 20111011
  Transmission Date: 20120403
  Serious: Yes (Life-Threatening, Hospitalization)
  Sender: FDA-Public Use
  Company Number: US-MERCK-0902USA00431

PATIENT
  Age: 60 Year
  Sex: Female

DRUGS (3)
  1. MEVACOR [Suspect]
     Route: 048
     Dates: end: 20111011
  2. PRAVACHOL [Suspect]
     Route: 065
  3. MEVACOR [Suspect]
     Route: 048
     Dates: start: 20020901, end: 20081201

REACTIONS (5)
  - INFLUENZA LIKE ILLNESS [None]
  - HEADACHE [None]
  - PALPITATIONS [None]
  - WRONG TECHNIQUE IN DRUG USAGE PROCESS [None]
  - DRUG DOSE OMISSION [None]
